FAERS Safety Report 6510664-4 (Version None)
Quarter: 2009Q4

REPORT INFORMATION
  Report Type: 
  Country: None (occurrence: None)
  Receive Date: 20091222
  Receipt Date: 20091014
  Transmission Date: 20100525
  Serious: No
  Sender: FDA-Public Use
  Company Number: US-ASTRAZENECA-2009SE20164

PATIENT
  Age: 64 Year
  Sex: Female
  Weight: 74.8 kg

DRUGS (4)
  1. CRESTOR [Suspect]
     Route: 048
     Dates: start: 20091001, end: 20091001
  2. CRESTOR [Suspect]
     Dosage: TOOK HALF OF A 10 MG TABLET.
     Route: 048
     Dates: start: 20091013
  3. BYSTALIC [Concomitant]
     Indication: HYPERTENSION
  4. FISH OIL [Concomitant]

REACTIONS (2)
  - ABDOMINAL PAIN [None]
  - INCORRECT DOSE ADMINISTERED [None]
